FAERS Safety Report 4338860-5 (Version None)
Quarter: 2004Q2

REPORT INFORMATION
  Report Type: 
  Country: None (occurrence: None)
  Receive Date: 20040409
  Receipt Date: 20040326
  Transmission Date: 20050107
  Serious: Yes (Other)
  Sender: FDA-Public Use
  Company Number: 2004-0006854

PATIENT
  Age: 54 Year
  Sex: Male

DRUGS (5)
  1. VISTIDE [Suspect]
     Indication: CYTOMEGALOVIRUS CHORIORETINITIS
  2. STAVUDINE (STAVUDINE) (CAPSULE) [Suspect]
     Indication: RETROVIRAL INFECTION
  3. NELFINAVIR (NELFINAVIR) [Suspect]
     Indication: RETROVIRAL INFECTION
     Dates: start: 19980101
  4. LAMIVUDINE (LAMIVUDINE) [Suspect]
     Indication: RETROVIRAL INFECTION
     Dates: start: 19980101
  5. VITRASERT [Suspect]
     Dosage: INTRAOCULAR
     Route: 031

REACTIONS (14)
  - CATARACT SUBCAPSULAR [None]
  - CD4 LYMPHOCYTES ABNORMAL [None]
  - CYTOMEGALOVIRUS CHORIORETINITIS [None]
  - FAILURE OF IMPLANT [None]
  - HYPOTONIA [None]
  - IMPLANT EXPULSION [None]
  - IMPLANT SITE REACTION [None]
  - INFLAMMATION [None]
  - IRIDOCYCLITIS [None]
  - MACULAR OEDEMA [None]
  - POST PROCEDURAL HAEMORRHAGE [None]
  - VISUAL ACUITY REDUCED [None]
  - VITREOUS HAEMORRHAGE [None]
  - VITRITIS [None]
